FAERS Safety Report 13011141 (Version 1)
Quarter: 2016Q4

REPORT INFORMATION
  Report Type: Report from Study
  Country: FR (occurrence: FR)
  Receive Date: 20161208
  Receipt Date: 20161208
  Transmission Date: 20170207
  Serious: Yes (Hospitalization)
  Sender: FDA-Public Use
  Company Number: FR-ROCHE-1134602

PATIENT
  Age: 45 Year
  Sex: Female

DRUGS (8)
  1. TOCILIZUMAB [Suspect]
     Active Substance: TOCILIZUMAB
     Indication: RHEUMATOID ARTHRITIS
     Dosage: SHE RECEIVED TOCILIZUMAB ON 10/JAN/2012
     Route: 042
     Dates: start: 20111213
  2. TRAMADOL. [Concomitant]
     Active Substance: TRAMADOL
     Route: 065
  3. TOCILIZUMAB [Suspect]
     Active Substance: TOCILIZUMAB
     Dosage: SHE RECEIVED TOCILIZUMAB ON 04/APR/2012, 02/MAY/2012 AND 30/MAY/2012.
     Route: 042
     Dates: start: 20120306
  4. METHOTREXATE. [Concomitant]
     Active Substance: METHOTREXATE
     Indication: RHEUMATOID ARTHRITIS
     Dosage: SHE RECEIVED 20 MG OF METHOTREXATE ONCE IN A WEEK ON 24/JUL/2012, 21/AUG/2012, 18/SEP/2012, 16/OCT/2
     Route: 065
     Dates: start: 20111213
  5. TOCILIZUMAB [Suspect]
     Active Substance: TOCILIZUMAB
     Dosage: SHE RECEIVED TOCILIZUMAB ON 8 MG/KG OF TOCILIZUMAB ON 24/JUL/2012, 21/AUG/2012, 18/SEP/2012, 16/OCT/
     Route: 042
     Dates: start: 20120627
  6. CORTANCYL [Concomitant]
     Active Substance: PREDNISONE
     Indication: RHEUMATOID ARTHRITIS
     Route: 048
     Dates: start: 20100716, end: 20121112
  7. PARACETAMOL [Concomitant]
     Active Substance: ACETAMINOPHEN
     Dosage: DOSE: 500
     Route: 065
  8. SPECIAFOLDINE [Concomitant]
     Active Substance: FOLIC ACID
     Dosage: 5 MG/WEEK
     Route: 065

REACTIONS (5)
  - Flatulence [Not Recovered/Not Resolved]
  - Vaginal haematoma [Recovered/Resolved]
  - Tendon rupture [Not Recovered/Not Resolved]
  - Abdominal pain lower [Not Recovered/Not Resolved]
  - Hyperthermia [Recovered/Resolved]

NARRATIVE: CASE EVENT DATE: 20120203
